FAERS Safety Report 13463351 (Version 1)
Quarter: 2017Q2

REPORT INFORMATION
  Report Type: Spontaneous
  Country: PL (occurrence: PL)
  Receive Date: 20170420
  Receipt Date: 20170420
  Transmission Date: 20170830
  Serious: Yes (Other)
  Sender: FDA-Public Use
  Company Number: PL-BAYER-2017-071587

PATIENT
  Age: 55 Year
  Sex: Male

DRUGS (7)
  1. AMOXICILLIN W/CLAVULANIC ACID [Suspect]
     Active Substance: AMOXICILLIN\CLAVULANIC ACID
  2. ACETYLSALICYLIC ACID (} 100 MG) [Suspect]
     Active Substance: ASPIRIN
  3. HEPARIN [Suspect]
     Active Substance: HEPARIN SODIUM
  4. KETOPROFEN. [Concomitant]
     Active Substance: KETOPROFEN
  5. METAMIZOLE [Concomitant]
     Active Substance: METAMIZOLE
  6. METRONIDAZOLE. [Concomitant]
     Active Substance: METRONIDAZOLE
  7. AMIKACIN [Concomitant]
     Active Substance: AMIKACIN

REACTIONS (6)
  - Chest pain [None]
  - Transient ischaemic attack [None]
  - Hypoxia [None]
  - Pulmonary embolism [None]
  - Atelectasis [None]
  - Dyspnoea [None]
